FAERS Safety Report 17224201 (Version 6)
Quarter: 2021Q4

REPORT INFORMATION
  Report Type: Report from Study
  Country: US (occurrence: US)
  Receive Date: 20200102
  Receipt Date: 20211011
  Transmission Date: 20220303
  Serious: Yes (Hospitalization, Other)
  Sender: FDA-Public Use
  Company Number: US-MYLANLABS-2019M1132582

PATIENT
  Sex: Female
  Weight: 5.53 kg

DRUGS (7)
  1. AMNESTEEM [Suspect]
     Active Substance: ISOTRETINOIN
     Indication: Product used for unknown indication
     Dosage: UNK UNK, BID
     Dates: start: 201906, end: 20191123
  2. AMNESTEEM [Suspect]
     Active Substance: ISOTRETINOIN
     Dosage: UNK UNK, BID
     Dates: start: 20190702
  3. AMNESTEEM [Suspect]
     Active Substance: ISOTRETINOIN
     Dosage: UNK UNK, BID
     Dates: start: 20190805
  4. AMNESTEEM [Suspect]
     Active Substance: ISOTRETINOIN
     Dosage: UNK UNK, BID
     Dates: start: 20190911
  5. AMNESTEEM [Suspect]
     Active Substance: ISOTRETINOIN
     Dosage: UNK UNK, BID
     Dates: start: 20191017
  6. AMNESTEEM [Suspect]
     Active Substance: ISOTRETINOIN
     Dosage: UNK UNK, BID
     Dates: end: 20191130
  7. LEXAPRO [Concomitant]
     Active Substance: ESCITALOPRAM OXALATE
     Indication: Product used for unknown indication
     Dosage: 10 MILLIGRAM

REACTIONS (2)
  - Exposure during pregnancy [Recovered/Resolved]
  - Type 2 diabetes mellitus [Not Recovered/Not Resolved]
